FAERS Safety Report 9049288 (Version 1)
Quarter: 2013Q1

REPORT INFORMATION
  Report Type: Report from Study
  Country: NL (occurrence: NL)
  Receive Date: 20130205
  Receipt Date: 20130205
  Transmission Date: 20140127
  Serious: Yes (Hospitalization)
  Sender: FDA-Public Use
  Company Number: NL-CELGENEUS-114-20785-10110009

PATIENT
  Age: 65 None
  Sex: Male
  Weight: 94 kg

DRUGS (11)
  1. THALIDOMIDE [Suspect]
     Indication: PLASMA CELL MYELOMA
     Dosage: 200 MILLIGRAM
     Route: 048
     Dates: start: 20101023
  2. THALIDOMIDE [Suspect]
     Dosage: 200 MILLIGRAM
     Route: 048
     Dates: start: 20100826
  3. THALIDOMIDE [Suspect]
     Dosage: 200 MILLIGRAM
     Route: 048
     Dates: start: 20100923
  4. MELPHALAN [Suspect]
     Indication: PLASMA CELL MYELOMA
     Dosage: 16 MILLIGRAM
     Route: 041
     Dates: start: 20101023
  5. MELPHALAN [Suspect]
     Dosage: 16 MILLIGRAM
     Route: 041
     Dates: start: 20100826
  6. MELPHALAN [Suspect]
     Dosage: 16 MILLIGRAM
     Route: 041
     Dates: start: 20100923
  7. PREDNISONE [Suspect]
     Indication: PLASMA CELL MYELOMA
     Dosage: 180 MILLIGRAM
     Route: 048
     Dates: start: 20101023
  8. PREDNISONE [Suspect]
     Dosage: 180 MILLIGRAM
     Route: 048
     Dates: start: 20100826
  9. PREDNISONE [Suspect]
     Dosage: 180 MILLIGRAM
     Route: 048
     Dates: start: 20100923
  10. FUROSEMIDE [Concomitant]
     Indication: DIURETIC THERAPY
     Dosage: 40 MILLIGRAM
     Route: 048
     Dates: start: 20101007, end: 20101110
  11. SPIRONOLACTON [Concomitant]
     Indication: DIURETIC THERAPY
     Dosage: 25 MILLIGRAM
     Route: 048
     Dates: start: 20101007, end: 20101118

REACTIONS (4)
  - Atrial flutter [Recovered/Resolved]
  - Atrial fibrillation [Recovered/Resolved]
  - Atrial fibrillation [Recovered/Resolved]
  - Pneumonia [Recovered/Resolved]
